FAERS Safety Report 9027983 (Version 1)
Quarter: 2013Q1

REPORT INFORMATION
  Report Type: Spontaneous
  Country: US (occurrence: None)
  Receive Date: 20130114
  Receipt Date: 20130114
  Transmission Date: 20140127
  Serious: Yes (Other)
  Sender: FDA-Public Use
  Company Number: None

PATIENT
  Sex: Male
  Weight: 108.86 kg

DRUGS (1)
  1. ATORVASTATIN [Suspect]
     Indication: BLOOD CHOLESTEROL DECREASED
     Dosage: 80 MG 1 @ DAY ORAL
     Route: 048
     Dates: start: 20120713, end: 20121201

REACTIONS (3)
  - Rash [None]
  - Urticaria [None]
  - Pruritus [None]
